FAERS Safety Report 7469380-7 (Version None)
Quarter: 2011Q2

REPORT INFORMATION
  Report Type: 
  Country: None (occurrence: None)
  Receive Date: 20110510
  Receipt Date: 20110331
  Transmission Date: 20111010
  Serious: Yes (Hospitalization, Other)
  Sender: FDA-Public Use
  Company Number: US-BAYER-201014808NA

PATIENT
  Age: 45 Year
  Sex: Female
  Weight: 47.619 kg

DRUGS (10)
  1. YAZ [Suspect]
     Indication: PREMENSTRUAL SYNDROME
     Dosage: AS USED DOSE: UNK
     Route: 048
     Dates: start: 20081018, end: 20081207
  2. PLAVIX [Concomitant]
     Dosage: UNK
     Dates: start: 20081201
  3. YAZ [Suspect]
     Indication: MENSTRUAL CYCLE MANAGEMENT
     Dosage: UNK
     Dates: start: 20081017, end: 20081114
  4. CONTRACEPTIVES NOS [Concomitant]
     Dosage: UNK
     Dates: end: 20081201
  5. LIPITOR [Concomitant]
     Dosage: UNK
     Dates: start: 20081201
  6. WOMEN'S ONE-A-DAY [Concomitant]
     Indication: VITAMIN SUPPLEMENTATION
     Dosage: UNK
  7. FLUTICASONE PROPIONATE [Concomitant]
     Indication: NASAL CONGESTION
     Dosage: UNK
     Route: 045
  8. TPN [Concomitant]
     Indication: NUTRITIONAL SUPPORT
     Dosage: UNK
     Dates: start: 20081201
  9. LOVENOX [Concomitant]
     Dosage: UNK
     Dates: start: 20081201
  10. ASPIRIN [Concomitant]
     Dosage: UNK
     Dates: start: 20081201, end: 20081201

REACTIONS (4)
  - MOTOR DYSFUNCTION [None]
  - SPEECH DISORDER [None]
  - CEREBROVASCULAR ACCIDENT [None]
  - COGNITIVE DISORDER [None]
